FAERS Safety Report 14843269 (Version 5)
Quarter: 2018Q3

REPORT INFORMATION
  Report Type: Spontaneous
  Country: US (occurrence: US)
  Receive Date: 20180503
  Receipt Date: 20180830
  Transmission Date: 20181010
  Serious: Yes (Other)
  Sender: FDA-Public Use
  Company Number: US-PFIZER INC-2018179745

PATIENT
  Age: 75 Year
  Sex: Male
  Weight: 94.79 kg

DRUGS (6)
  1. SUTENT [Suspect]
     Active Substance: SUNITINIB MALATE
     Dosage: 25 MG, CYCLIC [DAY 1?28 Q 42 DAYS]
     Route: 048
     Dates: start: 20180414
  2. SUTENT [Suspect]
     Active Substance: SUNITINIB MALATE
     Indication: RENAL CANCER METASTATIC
     Dosage: 12.5 MG, CYCLIC (DAYS 1?14 Q28 DAYS)
     Route: 048
     Dates: start: 20180414
  3. SUTENT [Suspect]
     Active Substance: SUNITINIB MALATE
     Dosage: 25 MG, CYCLIC (DAYS 1?14 Q28 DAYS)
     Route: 048
  4. SUTENT [Suspect]
     Active Substance: SUNITINIB MALATE
     Dosage: 25 MG, UNK
  5. SUTENT [Suspect]
     Active Substance: SUNITINIB MALATE
     Dosage: 50 MG, (DAILY Q 28 DAYS)
     Dates: start: 20180414
  6. SUTENT [Suspect]
     Active Substance: SUNITINIB MALATE
     Dosage: 50 MG, CYCLIC [D 1?28 Q 42DAYS]
     Route: 048
     Dates: start: 20180414

REACTIONS (16)
  - Gastrointestinal sounds abnormal [Unknown]
  - Memory impairment [Unknown]
  - Glossodynia [Unknown]
  - Rash [Unknown]
  - Diarrhoea [Unknown]
  - Ageusia [Unknown]
  - Eye pain [Unknown]
  - Genital discomfort [Unknown]
  - Stomatitis [Unknown]
  - Abdominal pain [Unknown]
  - Swollen tongue [Unknown]
  - Dysgeusia [Unknown]
  - Decreased appetite [Unknown]
  - Oropharyngeal pain [Unknown]
  - Fatigue [Unknown]
  - Ileus [Unknown]
